FAERS Safety Report 4347622-4 (Version None)
Quarter: 2004Q2

REPORT INFORMATION
  Report Type: 
  Country: None (occurrence: None)
  Receive Date: 20040422
  Receipt Date: 20040412
  Transmission Date: 20050107
  Serious: Yes (Hospitalization, Other)
  Sender: FDA-Public Use
  Company Number: US_0404102075

PATIENT
  Age: 15 Year
  Sex: Male
  Weight: 54 kg

DRUGS (5)
  1. ATOMOXETINE HYDROCHORIDE [Suspect]
     Indication: ATTENTION DEFICIT/HYPERACTIVITY DISORDER
     Dosage: 1200 MG
  2. BUPROPION HCL [Concomitant]
  3. RISPERIDONE [Concomitant]
  4. ALPRAZOLAM [Concomitant]
  5. ... [Concomitant]

REACTIONS (13)
  - ANXIETY [None]
  - BLOOD ALKALINE PHOSPHATASE INCREASED [None]
  - BLOOD CHLORIDE DECREASED [None]
  - BLOOD UREA DECREASED [None]
  - DEPRESSION [None]
  - DRY MOUTH [None]
  - ELECTROCARDIOGRAM QT PROLONGED [None]
  - GRAND MAL CONVULSION [None]
  - HEART RATE INCREASED [None]
  - INTENTIONAL OVERDOSE [None]
  - TREMOR [None]
  - VENTRICULAR HYPERTROPHY [None]
  - WHITE BLOOD CELL COUNT INCREASED [None]
